FAERS Safety Report 5601339-4 (Version None)
Quarter: 2008Q1

REPORT INFORMATION
  Report Type: 
  Country: None (occurrence: None)
  Receive Date: 20080124
  Receipt Date: 20080114
  Transmission Date: 20080703
  Serious: Yes (Hospitalization)
  Sender: FDA-Public Use
  Company Number: FR-WYE-H02260208

PATIENT
  Age: 60 Year
  Sex: Male

DRUGS (7)
  1. CORDARONE [Suspect]
     Route: 048
  2. VITAMIN B1 AND B6 [Concomitant]
     Dosage: 6 TABLETS A DAY
     Route: 048
  3. LASIX [Concomitant]
     Route: 048
  4. TRANXEN [Concomitant]
     Route: 048
     Dates: end: 20071105
  5. PREVISCAN [Interacting]
     Route: 048
     Dates: end: 20071105
  6. PREVISCAN [Interacting]
     Dosage: DOSE AND FREQUENCY NOT SPECIFIED
     Route: 065
  7. BISOPROLOL FUMARATE [Concomitant]
     Route: 048
     Dates: end: 20071105

REACTIONS (6)
  - DRUG INTERACTION [None]
  - GASTRIC ULCER [None]
  - HAEMATEMESIS [None]
  - INCORRECT DOSE ADMINISTERED [None]
  - INTERNATIONAL NORMALISED RATIO INCREASED [None]
  - MELAENA [None]
